FAERS Safety Report 20912228 (Version 1)
Quarter: 2022Q2

REPORT INFORMATION
  Report Type: Spontaneous
  Country: LB (occurrence: LB)
  Receive Date: 20220603
  Receipt Date: 20220603
  Transmission Date: 20220721
  Serious: Yes (Other)
  Sender: FDA-Public Use
  Company Number: LB-UCBSA-2022031355

PATIENT
  Age: 21 Year
  Sex: Female

DRUGS (3)
  1. KEPPRA [Suspect]
     Active Substance: LEVETIRACETAM
     Indication: Partial seizures with secondary generalisation
     Dosage: 1500 MILLIGRAM, 2X/DAY (BID)
  2. LACOSAMIDE [Suspect]
     Active Substance: LACOSAMIDE
     Indication: Partial seizures with secondary generalisation
     Dosage: UNKNOWN DOSE
  3. VALPROATE [Concomitant]
     Active Substance: VALPROIC ACID
     Indication: Partial seizures with secondary generalisation
     Dosage: UNKNOWN DOSE

REACTIONS (2)
  - Status epilepticus [Unknown]
  - Partial seizures with secondary generalisation [Unknown]
